FAERS Safety Report 9333092 (Version 1)
Quarter: 2013Q2

REPORT INFORMATION
  Report Type: Spontaneous
  Country: US (occurrence: US)
  Receive Date: 20130606
  Receipt Date: 20130606
  Transmission Date: 20140414
  Serious: Yes (Other)
  Sender: FDA-Public Use
  Company Number: US-SANOFI-AVENTIS-2013SA056180

PATIENT
  Age: 66 Year
  Sex: Female

DRUGS (2)
  1. LANTUS [Suspect]
     Dosage: DOSE:50 UNIT(S)
  2. NOVOLOG [Concomitant]
     Dosage: DOSE:20 UNIT(S)
     Dates: start: 2007

REACTIONS (3)
  - Glaucoma [Unknown]
  - Visual acuity reduced [Unknown]
  - Influenza [Unknown]
